FAERS Safety Report 8879992 (Version 1)
Quarter: 2012Q4

REPORT INFORMATION
  Report Type: Report from Study
  Country: US (occurrence: US)
  Receive Date: 20121031
  Receipt Date: 20121031
  Transmission Date: 20130627
  Serious: Yes (Hospitalization)
  Sender: FDA-Public Use
  Company Number: US-JNJFOC-20121017313

PATIENT
  Age: 16 Year
  Sex: Female
  Weight: 54.2 kg

DRUGS (6)
  1. REMICADE [Suspect]
     Indication: INFLAMMATORY BOWEL DISEASE
     Route: 042
     Dates: start: 20110630
  2. PANTOPRAZOLE [Concomitant]
  3. OLANZAPINE [Concomitant]
  4. LITHIUM [Concomitant]
  5. ALL OTHER THERAPEUTICS [Concomitant]
  6. MAGNESIUM CHLORIDE [Concomitant]

REACTIONS (1)
  - Explorative laparotomy [Recovered/Resolved with Sequelae]
